FAERS Safety Report 9210026 (Version 1)
Quarter: 2013Q2

REPORT INFORMATION
  Report Type: Spontaneous
  Country: US (occurrence: US)
  Receive Date: 20130404
  Receipt Date: 20130404
  Transmission Date: 20140414
  Serious: No
  Sender: FDA-Public Use
  Company Number: US-ASTELLAS-2013US001279

PATIENT
  Age: 96 Year
  Sex: Female
  Weight: 77 kg

DRUGS (14)
  1. MYRBETRIQ [Suspect]
     Indication: INCONTINENCE
     Dosage: 25 MG, UID/QD
     Route: 048
     Dates: start: 20130116
  2. VESICARE [Suspect]
     Indication: INCONTINENCE
     Dosage: UNK
     Route: 048
  3. JANUVIA [Concomitant]
     Indication: DIABETES MELLITUS
     Dosage: 50 MG, UID/QD
     Route: 048
  4. ALLOPURINOL [Concomitant]
     Indication: GOUT
     Dosage: 100 MG, UID/QD
     Route: 048
  5. MONTELUKAST SODIUM [Concomitant]
     Indication: ASTHMA
     Dosage: 10 MG, QHS
     Route: 048
  6. CRESTOR [Concomitant]
     Indication: BLOOD CHOLESTEROL
     Dosage: 10 MG, UID/QD
     Route: 048
  7. COLCRYS [Concomitant]
     Indication: GOUT
     Dosage: 0.6 MG, UID/QD
     Route: 048
  8. URSODIOL [Concomitant]
     Indication: CHOLELITHIASIS
     Dosage: 500 MG, UID/QD
     Route: 048
  9. ACTONEL [Concomitant]
     Indication: OSTEOPOROSIS
     Dosage: 35 MG, WEEKLY
     Route: 048
  10. ADVAIR [Concomitant]
     Indication: ASTHMA
     Dosage: 2 PUFFS, UNKNOWN/D
     Route: 055
  11. RESTASIS [Concomitant]
     Indication: DRY EYE
     Dosage: 1 DROP EACH EYE, BID
     Route: 047
  12. ACETAMINOPHEN [Concomitant]
     Indication: PAIN
     Dosage: 500 MG, BID
     Route: 048
  13. UNSPECIFIED INHALER [Concomitant]
     Indication: ASTHMA
     Dosage: 2 PUFFS, UID/QD
     Route: 055
  14. BISACODYL [Concomitant]
     Indication: LAXATIVE SUPPORTIVE CARE
     Dosage: 5 MG, BID
     Route: 048

REACTIONS (2)
  - Pain [Recovered/Resolved]
  - Abdominal pain upper [Recovered/Resolved]
